FAERS Safety Report 21525935 (Version 2)
Quarter: 2023Q1

REPORT INFORMATION
  Report Type: Spontaneous
  Country: US (occurrence: US)
  Receive Date: 20221031
  Receipt Date: 20230330
  Transmission Date: 20230417
  Serious: Yes (Hospitalization, Other)
  Sender: FDA-Public Use
  Company Number: US-NOVOPROD-972703

PATIENT
  Age: 54 Year
  Sex: Female

DRUGS (2)
  1. OZEMPIC [Suspect]
     Active Substance: SEMAGLUTIDE
     Indication: Product used for unknown indication
     Dosage: UNK
     Route: 058
  2. RECORLEV [Suspect]
     Active Substance: LEVOKETOCONAZOLE
     Indication: Cushing^s syndrome
     Dosage: 150
     Route: 048
     Dates: start: 20220817

REACTIONS (10)
  - Agitation [Unknown]
  - Nervousness [Unknown]
  - Headache [Not Recovered/Not Resolved]
  - Bacterial infection [Unknown]
  - Urinary tract infection [Unknown]
  - Surgery [Unknown]
  - Nausea [Not Recovered/Not Resolved]
  - Vomiting [Not Recovered/Not Resolved]
  - Ovarian disorder [Recovering/Resolving]
  - Uterine disorder [Recovering/Resolving]

NARRATIVE: CASE EVENT DATE: 20220801
